FAERS Safety Report 6005841-5 (Version None)
Quarter: 2008Q4

REPORT INFORMATION
  Report Type: 
  Country: None (occurrence: None)
  Receive Date: 20081217
  Receipt Date: 20081210
  Transmission Date: 20090506
  Serious: Yes (Death, Other)
  Sender: FDA-Public Use
  Company Number: FR-BAYER-200831367GPV

PATIENT
  Age: 17 Year
  Sex: Female

DRUGS (20)
  1. CIPROFLOXACIN HYDROCHLORIDE [Suspect]
     Indication: PYREXIA
     Dosage: UNIT DOSE: 400 MG
     Route: 042
     Dates: start: 20070331, end: 20070407
  2. CIPROFLOXACIN HYDROCHLORIDE [Interacting]
     Dosage: UNIT DOSE: 400 MG
     Route: 042
     Dates: start: 20070406, end: 20070407
  3. CELLCEPT [Interacting]
     Indication: PYREXIA
     Dosage: UNIT DOSE: 600 MG
     Route: 042
     Dates: start: 20070328, end: 20070525
  4. BUSILVEX [Concomitant]
     Indication: BONE MARROW CONDITIONING REGIMEN
     Route: 065
     Dates: start: 20070313, end: 20070316
  5. ENDOXAN [Concomitant]
     Indication: BONE MARROW CONDITIONING REGIMEN
     Route: 065
  6. ANTI-LYMPHOCYTIC SERUM HORSE LYMPHOGLOBULIN-LIKE [Concomitant]
     Indication: BONE MARROW CONDITIONING REGIMEN
     Route: 065
  7. CYCLOSPORINE [Concomitant]
     Indication: PROPHYLAXIS AGAINST GRAFT VERSUS HOST DISEASE
     Route: 065
  8. GENTALLINE [Concomitant]
     Indication: DYSPEPSIA
     Route: 065
  9. FUNGIZONE [Concomitant]
     Indication: DYSPEPSIA
     Route: 065
  10. URSOLVAN [Concomitant]
     Indication: DRUG USE FOR UNKNOWN INDICATION
     Route: 065
  11. TAZOCILLINE [Concomitant]
     Indication: PYREXIA
     Route: 042
  12. AMIKLIN [Concomitant]
     Indication: PYREXIA
     Route: 065
  13. VANCOMYCIN [Concomitant]
     Indication: PYREXIA
     Route: 065
  14. SOLU-MEDROL [Concomitant]
     Indication: DRUG USE FOR UNKNOWN INDICATION
     Dosage: UNIT DOSE: 2 MG/KG
     Route: 042
     Dates: start: 20070322
  15. SOLUDACTONE [Concomitant]
     Indication: DRUG USE FOR UNKNOWN INDICATION
     Route: 042
     Dates: start: 20070328
  16. DEFIBROTIDE [Concomitant]
     Indication: DRUG USE FOR UNKNOWN INDICATION
     Route: 065
  17. LASIX [Concomitant]
     Indication: DRUG USE FOR UNKNOWN INDICATION
     Dosage: UNIT DOSE: 40 MG
     Route: 042
     Dates: start: 20070328
  18. CANCIDAS [Concomitant]
     Indication: PYREXIA
     Dosage: UNIT DOSE: 70 MG
     Route: 042
     Dates: start: 20070403
  19. BACTRIM [Concomitant]
     Indication: PYREXIA
     Route: 042
     Dates: start: 20070402
  20. MABTHERA [Concomitant]
     Indication: EPSTEIN-BARR VIRUS INFECTION
     Route: 065

REACTIONS (2)
  - DRUG LEVEL DECREASED [None]
  - GRAFT VERSUS HOST DISEASE [None]
